FAERS Safety Report 6518895-4 (Version None)
Quarter: 2009Q4

REPORT INFORMATION
  Report Type: 
  Country: None (occurrence: None)
  Receive Date: 20091218
  Receipt Date: 20091207
  Transmission Date: 20100525
  Serious: No
  Sender: FDA-Public Use
  Company Number: 2009AP001663

PATIENT

DRUGS (2)
  1. SERTRALINE HYDROCHLORIDE [Suspect]
     Dosage: 150 MG;TRPL
     Route: 064
  2. ABILIFY [Suspect]
     Dosage: 15 MG;TRPL;QD
     Route: 064

REACTIONS (4)
  - ABORTION INDUCED [None]
  - CYTOGENETIC ABNORMALITY [None]
  - FOETAL MALFORMATION [None]
  - MATERNAL DRUGS AFFECTING FOETUS [None]
